FAERS Safety Report 8197471 (Version 6)
Quarter: 2013Q1

REPORT INFORMATION
  Report Type: Report from Study
  Country: FR (occurrence: FR)
  Receive Date: 20111024
  Receipt Date: 20130207
  Transmission Date: 20140127
  Serious: Yes (Hospitalization, Disabling)
  Sender: FDA-Public Use
  Company Number: PHHO2011FR16721

PATIENT
  Sex: Male
  Weight: 101 kg

DRUGS (3)
  1. AMN107 [Suspect]
     Indication: CHRONIC MYELOID LEUKAEMIA
     Dosage: 400 MG, BID
     Route: 048
     Dates: start: 20080924, end: 20111118
  2. APROVEL [Concomitant]
     Indication: HYPERTENSION
     Dosage: 300 MG, BID
     Route: 048
  3. TAMSULOSIN [Concomitant]
     Indication: BENIGN PROSTATIC HYPERPLASIA
     Dosage: 0.4 MG, QD

REACTIONS (1)
  - Myocardial infarction [Recovered/Resolved with Sequelae]
